FAERS Safety Report 6507081-X (Version None)
Quarter: 2009Q4

REPORT INFORMATION
  Report Type: 
  Country: None (occurrence: None)
  Receive Date: 20091221
  Receipt Date: 20091208
  Transmission Date: 20100525
  Serious: Yes (Hospitalization)
  Sender: FDA-Public Use
  Company Number: FR-NOVOPROD-300903

PATIENT
  Age: 83 Year
  Sex: Male

DRUGS (10)
  1. NOVORAPID [Suspect]
     Indication: TYPE 1 DIABETES MELLITUS
     Dosage: 74 IU, QD
     Route: 058
  2. LANTUS [Suspect]
     Indication: TYPE 1 DIABETES MELLITUS
     Dosage: 44 IU, QD
     Route: 058
  3. PREVISCAN                          /00789001/ [Concomitant]
     Dosage: 10 MG, QD
     Route: 048
     Dates: end: 20091021
  4. AMLOR [Concomitant]
     Dosage: 10 MG, QD
     Route: 048
  5. ELISOR [Concomitant]
     Dosage: 40 MG, QD
     Route: 048
  6. LEVOTHYROXINE SODIUM [Concomitant]
     Indication: HYPOTHYROIDISM
     Dosage: 75 UG, QD
     Route: 048
  7. RENITEC                            /00574901/ [Concomitant]
     Dosage: 20 MG, QD
     Route: 048
  8. TEMERIT                            /01339101/ [Concomitant]
     Dosage: 5 MG, QD
     Route: 048
  9. ZYLORIC                            /00003301/ [Concomitant]
     Dosage: 200 MG, QD
     Route: 048
  10. METFORMIN HCL [Concomitant]

REACTIONS (6)
  - ALTERED STATE OF CONSCIOUSNESS [None]
  - FALL [None]
  - HYPOGLYCAEMIA [None]
  - MICROCYTIC ANAEMIA [None]
  - TREATMENT NONCOMPLIANCE [None]
  - WEIGHT DECREASED [None]
